FAERS Safety Report 9498375 (Version 1)
Quarter: 2013Q3

REPORT INFORMATION
  Report Type: Spontaneous
  Country: US (occurrence: US)
  Receive Date: 20130904
  Receipt Date: 20130904
  Transmission Date: 20140515
  Serious: Yes (Other)
  Sender: FDA-Public Use
  Company Number: US-ELI_LILLY_AND_COMPANY-US201308007834

PATIENT
  Age: 34 Year
  Sex: Female

DRUGS (5)
  1. CYMBALTA [Suspect]
     Indication: BACK PAIN
     Dosage: 30 MG, QD
     Route: 065
     Dates: start: 201202
  2. CYMBALTA [Suspect]
     Indication: MYALGIA
     Dosage: 60 MG, QD
     Route: 065
     Dates: end: 2013
  3. CYMBALTA [Suspect]
     Indication: NEURALGIA
  4. VICODIN [Concomitant]
     Indication: BREAKTHROUGH PAIN
     Dosage: UNK, UNKNOWN
     Route: 065
  5. ASPIRIN [Concomitant]
     Dosage: UNK, UNKNOWN
     Route: 065

REACTIONS (15)
  - Exfoliative rash [Recovered/Resolved]
  - Suicidal behaviour [Unknown]
  - Depressed mood [Unknown]
  - Incontinence [Recovered/Resolved]
  - Gait disturbance [Unknown]
  - Visual impairment [Unknown]
  - Movement disorder [Unknown]
  - Speech disorder [Unknown]
  - Scar [Unknown]
  - Crying [Unknown]
  - Paraesthesia [Unknown]
  - Vomiting [Recovered/Resolved]
  - Dizziness [Recovered/Resolved]
  - Weight increased [Unknown]
  - Drug withdrawal syndrome [Unknown]
